FAERS Safety Report 4619081-5 (Version None)
Quarter: 2005Q2

REPORT INFORMATION
  Report Type: 
  Country: None (occurrence: None)
  Receive Date: 20050321
  Receipt Date: 20041209
  Transmission Date: 20051028
  Serious: Yes (Other)
  Sender: FDA-Public Use
  Company Number: 2004-12-0605

PATIENT

DRUGS (1)
  1. PEG-INTRON [Suspect]
     Dosage: SUBCUTANEOUS
     Route: 058
     Dates: start: 20040901

REACTIONS (1)
  - PLATELET COUNT DECREASED [None]
